FAERS Safety Report 19080012 (Version 3)
Quarter: 2021Q2

REPORT INFORMATION
  Report Type: Spontaneous
  Country: US (occurrence: US)
  Receive Date: 20210401
  Receipt Date: 20210427
  Transmission Date: 20210717
  Serious: Yes (Hospitalization)
  Sender: FDA-Public Use
  Company Number: US-UNITED THERAPEUTICS-UNT-2021-005416

PATIENT
  Age: 39 Year
  Sex: Female
  Weight: 56.69 kg

DRUGS (3)
  1. AMBRISENTAN [Concomitant]
     Active Substance: AMBRISENTAN
     Indication: PRODUCT USED FOR UNKNOWN INDICATION
     Dosage: UNK
     Route: 065
  2. TYVASO [Suspect]
     Active Substance: TREPROSTINIL
     Indication: PULMONARY ARTERIAL HYPERTENSION
     Dosage: UNK
     Dates: start: 20200114
  3. TYVASO [Suspect]
     Active Substance: TREPROSTINIL
     Dosage: 18?54 ?G, QID

REACTIONS (7)
  - Fluid retention [Unknown]
  - Dyspnoea [Unknown]
  - Oedema peripheral [Unknown]
  - Fluid overload [Unknown]
  - Unevaluable device issue [Unknown]
  - Pain [Unknown]
  - Sickle cell disease [Unknown]

NARRATIVE: CASE EVENT DATE: 202103
